FAERS Safety Report 24391562 (Version 1)
Quarter: 2024Q4

REPORT INFORMATION
  Report Type: Spontaneous
  Country: US (occurrence: None)
  Receive Date: 20241002
  Receipt Date: 20241002
  Transmission Date: 20250115
  Serious: Yes (Hospitalization)
  Sender: Public
  Company Number: None

PATIENT
  Age: 76 Year
  Sex: Male
  Weight: 68 kg

DRUGS (1)
  1. OLANZAPINE [Suspect]
     Active Substance: OLANZAPINE
     Indication: Agitation
     Dates: start: 20240214, end: 20240214

REACTIONS (4)
  - Unresponsive to stimuli [None]
  - Myoclonus [None]
  - Tremor [None]
  - Muscle rigidity [None]

NARRATIVE: CASE EVENT DATE: 20240214
